FAERS Safety Report 23776951 (Version 2)
Quarter: 2024Q2

REPORT INFORMATION
  Report Type: Report from Study
  Country: US (occurrence: US)
  Receive Date: 20240424
  Receipt Date: 20240606
  Transmission Date: 20240716
  Serious: No
  Sender: FDA-Public Use
  Company Number: US-AstraZeneca-CH-00608147A

PATIENT
  Sex: Female

DRUGS (1)
  1. SOLIRIS [Suspect]
     Active Substance: ECULIZUMAB
     Indication: Neuromyelitis optica spectrum disorder
     Dosage: UNK, UNK, Q2W
     Route: 042

REACTIONS (8)
  - Inflammation [Not Recovered/Not Resolved]
  - Discomfort [Not Recovered/Not Resolved]
  - Crying [Not Recovered/Not Resolved]
  - Product dose omission issue [Unknown]
  - Neck pain [Not Recovered/Not Resolved]
  - Arthralgia [Not Recovered/Not Resolved]
  - Depression [Unknown]
  - Pain in extremity [Not Recovered/Not Resolved]
